FAERS Safety Report 4627683-5 (Version None)
Quarter: 2005Q2

REPORT INFORMATION
  Report Type: 
  Country: None (occurrence: None)
  Receive Date: 20050401
  Receipt Date: 20050131
  Transmission Date: 20051028
  Serious: Yes (Death, Hospitalization)
  Sender: FDA-Public Use
  Company Number: 2005S1000354

PATIENT
  Age: 58 Year
  Sex: Male
  Weight: 98.4306 kg

DRUGS (12)
  1. CLOZAPINE [Suspect]
     Indication: SCHIZOPHRENIA, PARANOID TYPE
     Dosage: 12.5 MG; QD; PO;  50 MG; QD; PO
     Route: 048
     Dates: end: 20050124
  2. CLOZAPINE [Suspect]
     Indication: SCHIZOPHRENIA, PARANOID TYPE
     Dosage: 12.5 MG; QD; PO;  50 MG; QD; PO
     Route: 048
     Dates: start: 20041221
  3. CLOZAPINE [Suspect]
     Indication: SCHIZOPHRENIA, PARANOID TYPE
     Dosage: 100 MG; QD; PO
     Route: 048
     Dates: end: 20050124
  4. QUETIAPINE [Concomitant]
  5. RISPERIDONE [Concomitant]
  6. CLONAZEPAM [Concomitant]
  7. ACETYL SALICYLIC ACID USP BAT [Concomitant]
  8. MULTI-VITAMINS [Concomitant]
  9. DOCUSATE SODIUM [Concomitant]
  10. TERAZOSIN HYDROCHLORIDE [Concomitant]
  11. OXYBUTYNIN [Concomitant]
  12. LORAZEPAM [Concomitant]

REACTIONS (12)
  - ASTHMA [None]
  - BRONCHITIS ACUTE [None]
  - DYSARTHRIA [None]
  - DYSPHAGIA [None]
  - INFECTION [None]
  - INFLUENZA [None]
  - LEUKOPENIA [None]
  - PNEUMONIA ASPIRATION [None]
  - REFUSAL OF TREATMENT BY RELATIVE [None]
  - RESPIRATORY TRACT CONGESTION [None]
  - SEPSIS [None]
  - WHITE BLOOD CELL COUNT DECREASED [None]
